FAERS Safety Report 7683558-9 (Version None)
Quarter: 2011Q3

REPORT INFORMATION
  Report Type: 
  Country: None (occurrence: None)
  Receive Date: 20110815
  Receipt Date: 20110804
  Transmission Date: 20111222
  Serious: Yes (Other)
  Sender: FDA-Public Use
  Company Number: CA-JNJFOC-20110500293

PATIENT
  Sex: Male
  Weight: 71 kg

DRUGS (4)
  1. REMICADE [Suspect]
     Indication: CROHN'S DISEASE
     Route: 042
     Dates: start: 20110321
  2. REMICADE [Suspect]
     Dosage: 2ND DOSE OF INFLXIMAB
     Route: 042
     Dates: start: 20110401, end: 20110401
  3. IMURAN [Concomitant]
     Indication: CROHN'S DISEASE
     Dates: start: 20110101
  4. PENTASA [Concomitant]
     Indication: CROHN'S DISEASE

REACTIONS (2)
  - RASH [None]
  - CYTOMEGALOVIRUS INFECTION [None]
